FAERS Safety Report 21582934 (Version 3)
Quarter: 2025Q1

REPORT INFORMATION
  Report Type: Spontaneous
  Country: TN (occurrence: TN)
  Receive Date: 20221111
  Receipt Date: 20250122
  Transmission Date: 20250409
  Serious: Yes (Disabling, Other)
  Sender: STRIDES
  Company Number: None

PATIENT
  Age: 4 Year
  Sex: Female

DRUGS (2)
  1. OXYBUTYNIN [Suspect]
     Active Substance: OXYBUTYNIN
     Indication: Hypertonic bladder
     Route: 065
     Dates: start: 20220115, end: 202201
  2. OXYBUTYNIN [Suspect]
     Active Substance: OXYBUTYNIN
     Route: 065
     Dates: start: 20220311

REACTIONS (2)
  - Blindness [Recovered/Resolved]
  - Optic neuropathy [Recovered/Resolved]

NARRATIVE: CASE EVENT DATE: 20220311
